FAERS Safety Report 7141430-7 (Version None)
Quarter: 2010Q4

REPORT INFORMATION
  Report Type: 
  Country: None (occurrence: None)
  Receive Date: 20101207
  Receipt Date: 20101126
  Transmission Date: 20110411
  Serious: Yes (Other)
  Sender: FDA-Public Use
  Company Number: JP-ASTRAZENECA-2010SE54628

PATIENT
  Age: 75 Year
  Sex: Female

DRUGS (2)
  1. SEROQUEL [Suspect]
     Route: 048
     Dates: start: 20100901, end: 20101108
  2. PROLMON [Concomitant]
     Route: 048
     Dates: start: 20100901, end: 20101108

REACTIONS (1)
  - HEPATITIS FULMINANT [None]
